FAERS Safety Report 5228412-7 (Version None)
Quarter: 2007Q1

REPORT INFORMATION
  Report Type: 
  Country: None (occurrence: None)
  Receive Date: 20070131
  Receipt Date: 20070116
  Transmission Date: 20070707
  Serious: Yes (Other)
  Sender: FDA-Public Use
  Company Number: 235634

PATIENT
  Sex: Female

DRUGS (2)
  1. HERCEPTIN [Suspect]
     Indication: BREAST CANCER
     Dosage: INTRAVENOUS
     Route: 042
  2. GEMCITABINE [Concomitant]

REACTIONS (2)
  - CARBOHYDRATE ANTIGEN 125 INCREASED [None]
  - CARCINOEMBRYONIC ANTIGEN INCREASED [None]
